FAERS Safety Report 8889911 (Version 2)
Quarter: 2012Q4

REPORT INFORMATION
  Report Type: 
  Country: US (occurrence: US)
  Receive Date: 20121107
  Receipt Date: 20121113
  Transmission Date: 20130627
  Serious: Yes (Other)
  Sender: FDA-Public Use
  Company Number: US-PFIZER INC-2012277220

PATIENT
  Sex: Male

DRUGS (2)
  1. GEODON [Suspect]
     Indication: PSYCHOTIC DISORDER
     Dosage: 80 mg, 1x/day
     Route: 048
     Dates: start: 20120824, end: 201210
  2. GEODON [Suspect]
     Dosage: 40mg in morning and 80mg at night
     Route: 048
     Dates: start: 201210

REACTIONS (2)
  - Extrapyramidal disorder [Unknown]
  - Drug ineffective [Unknown]
